FAERS Safety Report 17204969 (Version 1)
Quarter: 2019Q4

REPORT INFORMATION
  Report Type: Spontaneous
  Country: US (occurrence: US)
  Receive Date: 20191227
  Receipt Date: 20191227
  Transmission Date: 20200122
  Serious: No
  Sender: FDA-Public Use
  Company Number: US-JNJFOC-20191224857

PATIENT

DRUGS (2)
  1. TYLENOL [Suspect]
     Active Substance: ACETAMINOPHEN
     Indication: MYALGIA
     Route: 065
  2. ADVIL [Suspect]
     Active Substance: IBUPROFEN
     Indication: MYALGIA
     Route: 065

REACTIONS (1)
  - Drug ineffective [Unknown]
